FAERS Safety Report 5145882-3 (Version None)
Quarter: 2006Q4

REPORT INFORMATION
  Report Type: 
  Country: None (occurrence: None)
  Receive Date: 20061106
  Receipt Date: 20061106
  Transmission Date: 20070319
  Serious: Yes (Other)
  Sender: FDA-Public Use
  Company Number: None

PATIENT
  Sex: Female
  Weight: 37.195 kg

DRUGS (3)
  1. SEROQUEL [Suspect]
     Indication: DEMENTIA
     Dosage: 100MG
     Dates: start: 20040101, end: 20061105
  2. SEROQUEL [Suspect]
     Indication: PSYCHOTIC DISORDER
     Dosage: 100MG
     Dates: start: 20040101, end: 20061105
  3. SEROQUEL [Suspect]
     Dosage: 50 MG
     Dates: start: 20040101, end: 20061105

REACTIONS (9)
  - ABASIA [None]
  - ANOREXIA [None]
  - DRUG INEFFECTIVE [None]
  - DYSKINESIA [None]
  - DYSPHASIA [None]
  - MEDICATION ERROR [None]
  - PARANOIA [None]
  - THERAPY REGIMEN CHANGED [None]
  - WEIGHT DECREASED [None]
